FAERS Safety Report 18384773 (Version 3)
Quarter: 2020Q4

REPORT INFORMATION
  Report Type: Spontaneous
  Country: US (occurrence: US)
  Receive Date: 20201015
  Receipt Date: 20201120
  Transmission Date: 20210114
  Serious: Yes (Other)
  Sender: FDA-Public Use
  Company Number: US-GW PHARMA-202010USGW03484

PATIENT

DRUGS (19)
  1. ACETONE [Concomitant]
     Active Substance: ACETONE
     Indication: PRODUCT USED FOR UNKNOWN INDICATION
     Dosage: 1 DOSAGE FORM (STRIP), BID; VIA INVITRO ROUTE
     Route: 065
  2. ALBUTEROL SULFATE HFA [Concomitant]
     Active Substance: ALBUTEROL SULFATE
     Indication: WHEEZING
     Dosage: 2 ACTUATION, PRN, EVERY 4 HOURS
  3. NANOVM 1 TO 3 YEARS [Concomitant]
     Indication: PRODUCT USED FOR UNKNOWN INDICATION
     Dosage: 1 DOSAGE FORM (SCOOP), QD
  4. EPIDIOLEX [Suspect]
     Active Substance: CANNABIDIOL
     Dosage: 250 MILLIGRAM, QD (MOM HELD MORNING DOSE)
     Route: 048
     Dates: start: 2020, end: 2020
  5. PROVENTIL [Concomitant]
     Active Substance: ALBUTEROL
     Indication: PRODUCT USED FOR UNKNOWN INDICATION
     Dosage: 2.5 MG, PRN (0.083% EVERY FOUR HOUR AS NEEDED)
     Route: 045
  6. LAMICTAL [Concomitant]
     Active Substance: LAMOTRIGINE
     Indication: PRODUCT USED FOR UNKNOWN INDICATION
     Dosage: 20 MILLIGRAM (4 TABLET), BID
  7. DEPAKENE [Concomitant]
     Active Substance: VALPROIC ACID
     Indication: PRODUCT USED FOR UNKNOWN INDICATION
     Dosage: 250 MILLIGRAM, TID FOR 30 DAYS
  8. SABRIL [Concomitant]
     Active Substance: VIGABATRIN
     Indication: PRODUCT USED FOR UNKNOWN INDICATION
     Dosage: 12 MILLILITER (MIX EACH PACK IN 10 MLWATER), BID; FORMULATION PACKET
     Route: 048
  9. ADVAIR HFA [Concomitant]
     Active Substance: FLUTICASONE PROPIONATE\SALMETEROL XINAFOATE
     Indication: PRODUCT USED FOR UNKNOWN INDICATION
     Dosage: 2 ACTUATION, BID (STRENGTH: 115-21MCG/ACT)
  10. LEVOCARNITINE. [Concomitant]
     Active Substance: LEVOCARNITINE
     Indication: PRODUCT USED FOR UNKNOWN INDICATION
     Dosage: 2 MILLILITER, BID
  11. OXYGEN. [Concomitant]
     Active Substance: OXYGEN
     Indication: PRODUCT USED FOR UNKNOWN INDICATION
     Dosage: 0.5 LITER
     Route: 065
  12. EPIDIOLEX [Suspect]
     Active Substance: CANNABIDIOL
     Indication: LENNOX-GASTAUT SYNDROME
     Dosage: 250 MILLIGRAM, BID (PRESCRIBED DOSE: WEEK 1: GIVE 0.25ML BY MOUTH TWICE DAILY, WEEK 2: 0.5ML TWICE D
     Route: 048
     Dates: start: 20200929, end: 2020
  13. ONFI [Concomitant]
     Active Substance: CLOBAZAM
     Indication: PRODUCT USED FOR UNKNOWN INDICATION
     Dosage: 3 MILLILITER (7.5 MG TOTAL), BID FOR 30 DAYS
  14. ONFI [Concomitant]
     Active Substance: CLOBAZAM
     Dosage: 2 MILLILITER (5 MG TOTAL), TID
  15. DESITIN [ZINC OXIDE] [Concomitant]
     Indication: PRODUCT USED FOR UNKNOWN INDICATION
     Dosage: APPLY TOPICAL AS NEEDED
     Route: 061
  16. EPIDIOLEX [Suspect]
     Active Substance: CANNABIDIOL
     Dosage: 125 MILLIGRAM, BID
     Route: 048
     Dates: start: 2020
  17. DIASTAT [DIAZEPAM] [Concomitant]
     Indication: SEIZURE
     Dosage: 5 MILLIGRAM, PRN
     Route: 054
  18. GLYCOLAX [Concomitant]
     Active Substance: POLYETHYLENE GLYCOL 3350
     Indication: PRODUCT USED FOR UNKNOWN INDICATION
     Dosage: 8.5 GRAM, TID
  19. TOPAMAX [Concomitant]
     Active Substance: TOPIRAMATE
     Indication: PRODUCT USED FOR UNKNOWN INDICATION
     Dosage: 115 MILLIGRAM, BID FOR 30 DAYS

REACTIONS (3)
  - Diarrhoea [Recovered/Resolved]
  - Haematochezia [Recovered/Resolved]
  - Incorrect dose administered [Recovered/Resolved]

NARRATIVE: CASE EVENT DATE: 20200929
